FAERS Safety Report 7169445-3 (Version None)
Quarter: 2010Q4

REPORT INFORMATION
  Report Type: 
  Country: None (occurrence: None)
  Receive Date: 20101217
  Receipt Date: 20101209
  Transmission Date: 20110411
  Serious: Yes (Hospitalization, Other)
  Sender: FDA-Public Use
  Company Number: HU-BIOGENIDEC-2010BI037178

PATIENT
  Age: 33 Year
  Sex: Female

DRUGS (4)
  1. NATALIZUMAB [Suspect]
     Indication: MULTIPLE SCLEROSIS
     Route: 042
     Dates: start: 20070124, end: 20101022
  2. XANAX [Concomitant]
     Indication: ANXIETY
     Route: 048
     Dates: start: 20070101
  3. ISOPRINOSINE [Concomitant]
     Route: 048
     Dates: start: 20101124
  4. MIRTEZEPINE [Concomitant]
     Route: 048
     Dates: start: 20101105

REACTIONS (1)
  - PROGRESSIVE MULTIFOCAL LEUKOENCEPHALOPATHY [None]
